FAERS Safety Report 7218324-1 (Version None)
Quarter: 2011Q1

REPORT INFORMATION
  Report Type: 
  Country: None (occurrence: None)
  Receive Date: 20110110
  Receipt Date: 20100713
  Transmission Date: 20110831
  Serious: No
  Sender: FDA-Public Use
  Company Number: US-BRISTOL-MYERS SQUIBB COMPANY-15189087

PATIENT
  Age: 52 Year
  Sex: Female

DRUGS (3)
  1. XANAX [Concomitant]
  2. TRAZODONE HCL [Suspect]
  3. DESYREL [Suspect]

REACTIONS (4)
  - HEADACHE [None]
  - AGITATION [None]
  - ANXIETY [None]
  - INSOMNIA [None]
